FAERS Safety Report 4467959-8 (Version None)
Quarter: 2004Q4

REPORT INFORMATION
  Report Type: 
  Country: None (occurrence: None)
  Receive Date: 20041004
  Receipt Date: 20041004
  Transmission Date: 20050328
  Serious: Yes (Disabling, Other)
  Sender: FDA-Public Use
  Company Number: None

PATIENT
  Age: 38 Year
  Sex: Female
  Weight: 53.0709 kg

DRUGS (1)
  1. ZICAM COLD REMEDY ZINCUM GLUCONICUM 2X  ZICAM LLC/ MATRIXX INITIATIVES [Suspect]
     Indication: NASOPHARYNGITIS
     Dosage: 1/NOSTRIL  EVERY 2-4  NASAL
     Route: 045
     Dates: start: 20040927, end: 20040927

REACTIONS (11)
  - ANOSMIA [None]
  - ARTHRALGIA [None]
  - BURNING SENSATION [None]
  - DEPRESSED MOOD [None]
  - HEADACHE [None]
  - HYPOGEUSIA [None]
  - INSOMNIA [None]
  - MUSCLE SPASMS [None]
  - NAUSEA [None]
  - NECK PAIN [None]
  - SINUS PAIN [None]
